FAERS Safety Report 7327904-4 (Version None)
Quarter: 2011Q1

REPORT INFORMATION
  Report Type: 
  Country: None (occurrence: None)
  Receive Date: 20110222
  Receipt Date: 20110214
  Transmission Date: 20110831
  Serious: Yes (Other)
  Sender: FDA-Public Use
  Company Number: CIP11000019

PATIENT
  Age: 77 Year
  Sex: Female

DRUGS (3)
  1. FOLIC ACID [Concomitant]
  2. MULTIVITAMIN [Concomitant]
  3. ACTONEL [Suspect]
     Indication: OSTEOPOROSIS PROPHYLAXIS
     Dosage: ORAL
     Route: 048
     Dates: start: 20000101

REACTIONS (4)
  - MUSCLE SPASMS [None]
  - CARDIAC FAILURE [None]
  - LOSS OF CONSCIOUSNESS [None]
  - CHOKING [None]
